FAERS Safety Report 16199965 (Version 1)
Quarter: 2019Q2

REPORT INFORMATION
  Report Type: Spontaneous
  Country: JP (occurrence: JP)
  Receive Date: 20190415
  Receipt Date: 20190415
  Transmission Date: 20190711
  Serious: Yes (Life-Threatening, Hospitalization)
  Sender: FDA-Public Use
  Company Number: JP-BAXTER-2019BAX007505

PATIENT
  Age: 83 Year
  Sex: Female

DRUGS (10)
  1. ENDOXAN 1G [Suspect]
     Active Substance: CYCLOPHOSPHAMIDE
     Dosage: SECOND CYCLE OF  CHOP THERAPY; 120 MINUTES
     Route: 041
     Dates: start: 20190403
  2. ONCOVIN [Suspect]
     Active Substance: VINCRISTINE SULFATE
     Dosage: SECOND CYCLE OF CHOP THERAPY
     Route: 041
     Dates: start: 20190403
  3. PREDNISOLONE. [Suspect]
     Active Substance: PREDNISOLONE
     Indication: LYMPHOMA
     Dosage: FIRST CYCLE OF CHOP THERAPY
     Route: 065
  4. PREDNISOLONE. [Suspect]
     Active Substance: PREDNISOLONE
     Dosage: SECOND CYCLE OF CHOP THERAPY
     Route: 065
  5. GRANISETRON HYDROCHLORIDE. [Suspect]
     Active Substance: GRANISETRON HYDROCHLORIDE
     Indication: LYMPHOMA
     Dosage: 15 MINUTES
     Route: 041
     Dates: start: 20190403
  6. DOXORUBICIN HYDROCHLORIDE. [Suspect]
     Active Substance: DOXORUBICIN HYDROCHLORIDE
     Indication: LYMPHOMA
     Dosage: FIRST CYCLE OF CHOP THERAPY
     Route: 041
  7. ADRENALINE [Suspect]
     Active Substance: EPINEPHRINE
     Indication: ANAPHYLACTIC SHOCK
     Route: 065
     Dates: start: 20190403
  8. DOXORUBICIN HYDROCHLORIDE. [Suspect]
     Active Substance: DOXORUBICIN HYDROCHLORIDE
     Dosage: 30 MINUTES; SECOND CYCLE OF CHOP THERAPY
     Route: 041
     Dates: start: 20190403
  9. ENDOXAN 1G [Suspect]
     Active Substance: CYCLOPHOSPHAMIDE
     Indication: LYMPHOMA
     Dosage: FIRST CYCLE OF CHOP THERAPY
     Route: 041
  10. ONCOVIN [Suspect]
     Active Substance: VINCRISTINE SULFATE
     Indication: LYMPHOMA
     Dosage: FIRST CYCLE OF CHOP THERAPY
     Route: 041

REACTIONS (2)
  - Anaphylactic shock [Recovering/Resolving]
  - Therapy non-responder [Unknown]

NARRATIVE: CASE EVENT DATE: 20190403
